FAERS Safety Report 25131664 (Version 1)
Quarter: 2025Q1

REPORT INFORMATION
  Report Type: Spontaneous
  Country: US (occurrence: US)
  Receive Date: 20250327
  Receipt Date: 20250327
  Transmission Date: 20250409
  Serious: Yes (Other)
  Sender: AMGEN
  Company Number: US-AMGEN-USASP2025054953

PATIENT
  Age: 17 Year
  Sex: Female

DRUGS (4)
  1. PREDNISONE [Suspect]
     Active Substance: PREDNISONE
     Indication: Retinal vasculitis
     Dosage: 20 MILLIGRAM, QD
     Route: 048
  2. PREDNISONE [Suspect]
     Active Substance: PREDNISONE
     Indication: Epstein-Barr virus infection
  3. VALACYCLOVIR [Concomitant]
     Active Substance: VALACYCLOVIR HYDROCHLORIDE
     Indication: Retinal vasculitis
     Dosage: 1 GRAM, TID
     Route: 048
  4. VALACYCLOVIR [Concomitant]
     Active Substance: VALACYCLOVIR HYDROCHLORIDE
     Indication: Epstein-Barr virus infection

REACTIONS (3)
  - Retinal vasculitis [Recovered/Resolved]
  - Drug effective for unapproved indication [Unknown]
  - Off label use [Unknown]
